FAERS Safety Report 8806223 (Version 1)
Quarter: 2012Q4

REPORT INFORMATION
  Report Type: Spontaneous
  Country: DK (occurrence: None)
  Receive Date: 20120918
  Receipt Date: 20120918
  Transmission Date: 20130627
  Serious: Yes (Other)
  Sender: FDA-Public Use
  Company Number: 2012MA011143

PATIENT
  Age: 58 Year

DRUGS (3)
  1. FLUDARABINE PHOSPHATE [Suspect]
     Indication: CLL
  2. MABTHERA [Suspect]
  3. CYCLOPHOSPHAMIDE [Suspect]

REACTIONS (3)
  - Infusion related reaction [None]
  - Contusion [None]
  - Fatigue [None]
